FAERS Safety Report 20436654 (Version 1)
Quarter: 2022Q1

REPORT INFORMATION
  Report Type: Spontaneous
  Country: PT (occurrence: PT)
  Receive Date: 20220207
  Receipt Date: 20220207
  Transmission Date: 20220423
  Serious: Yes (Other)
  Sender: FDA-Public Use
  Company Number: None

PATIENT
  Age: 66 Year
  Sex: Female
  Weight: 84 kg

DRUGS (13)
  1. IRINOTECAN [Suspect]
     Active Substance: IRINOTECAN
     Indication: Pancreatic carcinoma
     Dosage: 222MG EVERY 14/14 DAYS
     Route: 042
     Dates: start: 20210106
  2. LEUCOVORIN CALCIUM [Suspect]
     Active Substance: LEUCOVORIN CALCIUM
     Indication: Pancreatic carcinoma
     Dosage: 592MG EVERY 14 DAYS
     Route: 042
     Dates: start: 20210106
  3. DEXAMETHASONE [Concomitant]
     Active Substance: DEXAMETHASONE
  4. OMEPRAZOLE [Concomitant]
     Active Substance: OMEPRAZOLE
  5. ONDANSETRON [Concomitant]
     Active Substance: ONDANSETRON
  6. VALSARTAN AND HYDROCHLOROTHIAZIDE [Concomitant]
     Active Substance: HYDROCHLOROTHIAZIDE\VALSARTAN
  7. ALPRAZOLAM [Concomitant]
     Active Substance: ALPRAZOLAM
  8. LAMIVUDINE [Concomitant]
     Active Substance: LAMIVUDINE
  9. ISOSORBIDE [Concomitant]
     Active Substance: ISOSORBIDE
  10. OXALIPLATIN [Concomitant]
     Active Substance: OXALIPLATIN
  11. APIXABAN [Concomitant]
     Active Substance: APIXABAN
  12. SOTALOL [Concomitant]
     Active Substance: SOTALOL
  13. ATORVASTATIN [Concomitant]
     Active Substance: ATORVASTATIN

REACTIONS (6)
  - Heart rate increased [Recovered/Resolved]
  - Blepharospasm [Recovered/Resolved]
  - Hyperhidrosis [Recovered/Resolved]
  - Blood pressure increased [Recovered/Resolved]
  - Feeling hot [Recovered/Resolved]
  - Off label use [Unknown]

NARRATIVE: CASE EVENT DATE: 20210421
